FAERS Safety Report 8794963 (Version 1)
Quarter: 2012Q4

REPORT INFORMATION
  Report Type: 
  Country: FJ (occurrence: FJ)
  Receive Date: 20120918
  Receipt Date: 20120918
  Transmission Date: 20130627
  Serious: Yes (Other)
  Sender: FDA-Public Use
  Company Number: PHHY2005FJ007663

PATIENT
  Sex: Female

DRUGS (2)
  1. GLIVEC [Suspect]
     Dates: start: 20040907
  2. GLIVEC [Suspect]
     Dosage: 600 mg, daily

REACTIONS (4)
  - Hepatosplenomegaly [Unknown]
  - Thrombocytosis [Unknown]
  - White blood cell count increased [Unknown]
  - Blast cells present [None]
